FAERS Safety Report 15879909 (Version 1)
Quarter: 2019Q1

REPORT INFORMATION
  Report Type: Spontaneous
  Country: FR (occurrence: FR)
  Receive Date: 20190128
  Receipt Date: 20190128
  Transmission Date: 20190417
  Serious: Yes (Hospitalization)
  Sender: FDA-Public Use
  Company Number: FR-BAYER-200610061BFR

PATIENT
  Age: 75 Year
  Sex: Female

DRUGS (13)
  1. KARDEGIC [Concomitant]
     Active Substance: ASPIRIN DL-LYSINE
     Indication: UNEVALUABLE EVENT
     Dosage: DAILY DOSE 75 MG
     Route: 048
  2. BRICANYL [Concomitant]
     Active Substance: TERBUTALINE SULFATE
     Indication: UNEVALUABLE EVENT
     Route: 055
  3. ACEBUTOLOL [Concomitant]
     Active Substance: ACEBUTOLOL
     Indication: UNEVALUABLE EVENT
     Route: 048
  4. LOVENOX [Concomitant]
     Active Substance: ENOXAPARIN SODIUM
     Indication: UNEVALUABLE EVENT
     Dosage: DAILY DOSE .4 ML
     Route: 058
  5. KARDEGIC [Concomitant]
     Active Substance: ASPIRIN DL-LYSINE
     Indication: UNEVALUABLE EVENT
     Dosage: 75 MG, QD
     Route: 048
  6. LOVENOX [Concomitant]
     Active Substance: ENOXAPARIN SODIUM
     Indication: UNEVALUABLE EVENT
     Dosage: 0.4 ML, QD
     Route: 058
  7. AMIODARONE [Concomitant]
     Active Substance: AMIODARONE
     Indication: UNEVALUABLE EVENT
     Route: 048
  8. TRINIPATCH [Concomitant]
     Active Substance: NITROGLYCERIN
     Indication: UNEVALUABLE EVENT
     Dosage: 5 MG (DAILY DOSE), QD, UNKNOWN
     Route: 065
  9. CIFLOX [CIPROFLOXACIN] [Suspect]
     Active Substance: CIPROFLOXACIN
     Indication: BRONCHOPNEUMOPATHY
     Dosage: UNK
     Route: 048
  10. THERALENE [Concomitant]
     Active Substance: TRIMEPRAZINE
     Indication: UNEVALUABLE EVENT
     Dosage: 40 DROP
  11. ZOPICLONE [Concomitant]
     Active Substance: ZOPICLONE
     Indication: UNEVALUABLE EVENT
     Route: 048
  12. ATROVENT [Concomitant]
     Active Substance: IPRATROPIUM BROMIDE
     Indication: UNEVALUABLE EVENT
     Dosage: UNK
     Route: 055
  13. THERALENE [Concomitant]
     Active Substance: TRIMEPRAZINE
     Indication: UNEVALUABLE EVENT
     Dosage: DAILY DOSE 40 GTT
     Route: 048

REACTIONS (2)
  - Rash maculo-papular [Recovered/Resolved]
  - Acute generalised exanthematous pustulosis [Recovered/Resolved]

NARRATIVE: CASE EVENT DATE: 20051202
